FAERS Safety Report 8460223-1 (Version None)
Quarter: 2012Q2

REPORT INFORMATION
  Report Type: 
  Country: None (occurrence: None)
  Receive Date: 20120622
  Receipt Date: 20120615
  Transmission Date: 20120825
  Serious: Yes (Death)
  Sender: FDA-Public Use
  Company Number: US-INCYTE CORPORATION-2012IN000821

PATIENT
  Sex: Male
  Weight: 76 kg

DRUGS (5)
  1. JAKAFI [Suspect]
     Indication: MYELOFIBROSIS
     Dosage: 10 MG, BID
     Route: 048
  2. NEXIUM [Concomitant]
  3. NOROXIN [Concomitant]
  4. VERAPAMIL [Concomitant]
  5. VALTREX [Concomitant]

REACTIONS (1)
  - BONE MARROW FAILURE [None]
